FAERS Safety Report 4576755-2 (Version None)
Quarter: 2005Q1

REPORT INFORMATION
  Report Type: 
  Country: None (occurrence: None)
  Receive Date: 20050207
  Receipt Date: 20050124
  Transmission Date: 20050727
  Serious: Yes (Other)
  Sender: FDA-Public Use
  Company Number: 2005019183

PATIENT
  Age: 43 Year
  Sex: Female
  Weight: 63.5036 kg

DRUGS (2)
  1. NEURONTIN [Suspect]
     Indication: MULTIPLE SCLEROSIS
     Dosage: 300 MG (300 MG, 1 IN 1 D), ORAL
     Route: 048
     Dates: start: 20050122
  2. PREDNISONE TAB [Suspect]
     Indication: ILL-DEFINED DISORDER
     Dates: end: 20050124

REACTIONS (3)
  - ABSCESS [None]
  - IMMUNOSUPPRESSION [None]
  - LOCALISED INFECTION [None]
